FAERS Safety Report 7424643-6 (Version None)
Quarter: 2011Q2

REPORT INFORMATION
  Report Type: 
  Country: None (occurrence: None)
  Receive Date: 20110419
  Receipt Date: 20110418
  Transmission Date: 20111010
  Serious: Yes (Disabling, Other)
  Sender: FDA-Public Use
  Company Number: US-PFIZER INC-2010067807

PATIENT
  Sex: Female
  Weight: 80.726 kg

DRUGS (6)
  1. PANCRELIPASE [Concomitant]
     Indication: PANCREATIC CARCINOMA
     Dosage: 5000 IU, UNK
  2. LEVOTHYROXINE [Concomitant]
     Indication: HYPOTHYROIDISM
     Dosage: 112 UG, 1X/DAY
     Route: 048
  3. SUTENT [Suspect]
     Indication: PANCREATIC NEUROENDOCRINE TUMOUR
     Dosage: 50 MG, 1X/DAY
     Route: 048
     Dates: start: 20100501
  4. OMEPRAZOLE [Concomitant]
     Indication: HYPERCHLORHYDRIA
     Dosage: 20 MG, 1X/DAY
     Route: 048
  5. METOPROLOL [Concomitant]
     Indication: HEART RATE IRREGULAR
     Dosage: 25 MG, 1X/DAY
     Route: 048
  6. PANTOPRAZOLE [Concomitant]
     Indication: PANCREATIC OPERATION
     Dosage: 40 MG, 1X/DAY
     Route: 048

REACTIONS (5)
  - HYPOGLYCAEMIA [None]
  - GAIT DISTURBANCE [None]
  - FRACTURE [None]
  - ARTHRALGIA [None]
  - BLOOD PRESSURE INCREASED [None]
